FAERS Safety Report 7575369-X (Version None)
Quarter: 2011Q2

REPORT INFORMATION
  Report Type: 
  Country: None (occurrence: None)
  Receive Date: 20110627
  Receipt Date: 20110614
  Transmission Date: 20111010
  Serious: Yes (Life-Threatening, Hospitalization, Other)
  Sender: FDA-Public Use
  Company Number: US-ELI_LILLY_AND_COMPANY-US201104005446

PATIENT
  Sex: Female

DRUGS (22)
  1. VITAMIN TAB [Concomitant]
  2. LOVAZA [Concomitant]
  3. ASCORBIC ACID [Concomitant]
  4. FORTEO [Suspect]
     Indication: OSTEOPOROSIS
     Dosage: 20 UG, QD
     Route: 065
     Dates: start: 20091101, end: 20110228
  5. VITAMIN E [Concomitant]
  6. BETA CAROTENE [Concomitant]
  7. MAGNESIUM [Concomitant]
  8. FORTEO [Suspect]
     Dosage: 20 UG, QD
     Route: 065
  9. METAMUCIL-2 [Concomitant]
     Dosage: UNK, EACH EVENING
  10. CALCIUM CARBONATE [Concomitant]
  11. ANESTHETICS [Concomitant]
  12. OSTEO BI-FLEX [Concomitant]
  13. OMEPRAZOLE [Concomitant]
     Dosage: 40 MG, EACH MORNING
  14. LISINOPRIL [Concomitant]
     Dosage: 10 MG, EACH EVENING
  15. CRESTOR [Concomitant]
     Dosage: 10 MG, EACH EVENING
  16. VITAMIN D [Concomitant]
  17. PLAVIX [Concomitant]
     Dosage: 75 MG, EACH MORNING
  18. LOVAZA [Concomitant]
     Dosage: 1 MG, EACH EVENING
  19. FISH OIL [Concomitant]
  20. VITAMIN B-12 [Concomitant]
  21. PENTOXIFYLLINE [Concomitant]
     Dosage: 400 MG, PRN
  22. LOVAZA [Concomitant]
     Dosage: 1 G, UNK

REACTIONS (19)
  - CONTUSION [None]
  - ASTHENIA [None]
  - STENT REMOVAL [None]
  - PRODUCTIVE COUGH [None]
  - PERIPHERAL ARTERIAL OCCLUSIVE DISEASE [None]
  - INJECTION SITE ERYTHEMA [None]
  - INJECTION SITE PRURITUS [None]
  - VASCULAR OCCLUSION [None]
  - POST PROCEDURAL COMPLICATION [None]
  - WEIGHT DECREASED [None]
  - INJECTION SITE HAEMORRHAGE [None]
  - COLD SWEAT [None]
  - VISION BLURRED [None]
  - DYSPNOEA [None]
  - HYPERSENSITIVITY [None]
  - APNOEA [None]
  - CHILLS [None]
  - THROAT TIGHTNESS [None]
  - INJECTION SITE HAEMATOMA [None]
